FAERS Safety Report 11990058 (Version 1)
Quarter: 2016Q1

REPORT INFORMATION
  Report Type: Spontaneous
  Country: US (occurrence: US)
  Receive Date: 20160202
  Receipt Date: 20160202
  Transmission Date: 20160526
  Serious: No
  Sender: FDA-Public Use
  Company Number: US-ELI_LILLY_AND_COMPANY-US201601003010

PATIENT
  Age: 42 Year
  Sex: Female

DRUGS (2)
  1. HUMULIN R [Suspect]
     Active Substance: INSULIN HUMAN
     Indication: PRODUCT USED FOR UNKNOWN INDICATION
     Dosage: UNK, UNKNOWN
     Route: 058
  2. PREDNISONE. [Suspect]
     Active Substance: PREDNISONE
     Indication: INFECTION
     Dosage: UNK, UNKNOWN
     Route: 065

REACTIONS (2)
  - Blood glucose abnormal [Unknown]
  - Infusion site haemorrhage [Unknown]

NARRATIVE: CASE EVENT DATE: 20160202
